FAERS Safety Report 15956673 (Version 1)
Quarter: 2019Q1

REPORT INFORMATION
  Report Type: Spontaneous
  Country: US (occurrence: US)
  Receive Date: 20190212
  Receipt Date: 20190212
  Transmission Date: 20190417
  Serious: Yes (Hospitalization, Other)
  Sender: FDA-Public Use
  Company Number: None

PATIENT
  Age: 21 Year
  Sex: Female

DRUGS (4)
  1. PYRIDOXINE 50MG [Suspect]
     Active Substance: PYRIDOXINE
     Route: 048
     Dates: start: 20160624, end: 20160712
  2. ISONIAZID 300MG [Suspect]
     Active Substance: ISONIAZID
     Route: 048
     Dates: start: 20160624, end: 20160712
  3. PRIFTIN [Suspect]
     Active Substance: RIFAPENTINE
     Route: 048
     Dates: start: 20160624, end: 20160712
  4. DOLUTEGRAVIR (TIVICAY) 50MG [Suspect]
     Active Substance: DOLUTEGRAVIR
     Route: 048
     Dates: start: 20160624, end: 20160712

REACTIONS (8)
  - Influenza like illness [None]
  - Protein urine present [None]
  - Urine leukocyte esterase positive [None]
  - Blood bilirubin increased [None]
  - Aspartate aminotransferase increased [None]
  - Dehydration [None]
  - Alanine aminotransferase increased [None]
  - Bilirubin conjugated increased [None]

NARRATIVE: CASE EVENT DATE: 20160712
